FAERS Safety Report 7197264-0 (Version None)
Quarter: 2010Q4

REPORT INFORMATION
  Report Type: 
  Country: None (occurrence: None)
  Receive Date: 20101226
  Receipt Date: 20101214
  Transmission Date: 20110411
  Serious: Yes (Hospitalization, Other)
  Sender: FDA-Public Use
  Company Number: CA-ELI_LILLY_AND_COMPANY-CA201009001499

PATIENT
  Age: 56 Year
  Sex: Female

DRUGS (16)
  1. FORTEO [Suspect]
     Indication: OSTEOPOROSIS
     Dosage: 20 UG, DAILY (1/D)
     Route: 058
     Dates: start: 20090916, end: 20100615
  2. CORDARONE [Concomitant]
     Dosage: UNK, UNKNOWN
     Route: 065
  3. ATACAND [Concomitant]
     Dosage: UNK, UNKNOWN
     Route: 065
  4. ATACAND [Concomitant]
     Dosage: 32 MG, DAILY (1/D)
  5. NOVO-SEMIDE [Concomitant]
     Dosage: UNK, UNKNOWN
     Route: 065
  6. ALDACTONE [Concomitant]
     Dosage: UNK, UNKNOWN
     Route: 065
  7. PREDNISONE [Concomitant]
     Dosage: UNK, UNKNOWN
     Route: 065
  8. NEXIUM [Concomitant]
     Dosage: UNK, UNKNOWN
     Route: 065
  9. SYNTHROID [Concomitant]
     Dosage: UNK, UNKNOWN
     Route: 065
  10. CALCITE [Concomitant]
     Dosage: UNK, UNKNOWN
     Route: 065
  11. COUMADIN [Concomitant]
     Indication: ATRIAL FIBRILLATION
     Dosage: UNK, UNKNOWN
     Route: 065
  12. FERROUS SULFATE [Concomitant]
  13. CARVEDILOL [Concomitant]
  14. LASIX [Concomitant]
  15. SPIRONOLACTONE [Concomitant]
  16. CARBOCAL [Concomitant]

REACTIONS (3)
  - CARDIAC FAILURE [None]
  - CONGESTIVE CARDIOMYOPATHY [None]
  - RENAL FAILURE CHRONIC [None]
